FAERS Safety Report 6445872-4 (Version None)
Quarter: 2009Q4

REPORT INFORMATION
  Report Type: 
  Country: None (occurrence: None)
  Receive Date: 20091119
  Receipt Date: 20091105
  Transmission Date: 20100525
  Serious: Yes (Hospitalization, Other)
  Sender: FDA-Public Use
  Company Number: GB-SOLVAY-00307035241

PATIENT
  Age: 4 Year
  Sex: Female

DRUGS (6)
  1. FLUCLOXACILLIN [Concomitant]
     Indication: PROPHYLAXIS
     Dosage: DAILY DOSE: 750 MILLIGRAM(S)
     Route: 048
  2. CREON [Suspect]
     Indication: PANCREATIC INSUFFICIENCY
     Dosage: DAILY DOSE:  UNKNOWN; AS NEEDED, MDU
     Route: 048
  3. CREON [Suspect]
     Dosage: DAILY DOSE:  UNKNOWN, AS NEEDED, MDU
     Route: 048
  4. VITAMIN E [Concomitant]
     Indication: MEDICAL DIET
     Dosage: DAILY DOSE: 10 MILLIGRAM(S)
     Route: 048
  5. VITAMIN K TAB [Concomitant]
     Indication: MEDICAL DIET
     Dosage: DAILY DOSE: 5 MILLIGRAM(S)
     Route: 048
  6. DALIVIT [Concomitant]
     Indication: MEDICAL DIET
     Dosage: DAILY DOSE: 1.2 MILLILITRE(S)
     Route: 048

REACTIONS (1)
  - DISTAL INTESTINAL OBSTRUCTION SYNDROME [None]
